FAERS Safety Report 4504925-8 (Version None)
Quarter: 2004Q4

REPORT INFORMATION
  Report Type: 
  Country: None (occurrence: None)
  Receive Date: 20041020
  Receipt Date: 20040825
  Transmission Date: 20050328
  Serious: No
  Sender: FDA-Public Use
  Company Number: 2004-08-1667

PATIENT

DRUGS (4)
  1. CLARINEX [Suspect]
     Dosage: ORAL
     Route: 048
  2. FLONASE [Concomitant]
  3. ANTIHYPERTENSIVE AGENT (NOS) [Concomitant]
  4. PATANOL [Concomitant]

REACTIONS (3)
  - BLOOD GLUCOSE FLUCTUATION [None]
  - BLOOD PRESSURE FLUCTUATION [None]
  - DRUG INEFFECTIVE [None]
